FAERS Safety Report 4353602-5 (Version None)
Quarter: 2004Q2

REPORT INFORMATION
  Report Type: 
  Country: None (occurrence: None)
  Receive Date: 20040430
  Receipt Date: 20040419
  Transmission Date: 20050107
  Serious: Yes (Hospitalization, Other)
  Sender: FDA-Public Use
  Company Number: 2004027372

PATIENT
  Age: 71 Year
  Sex: Male

DRUGS (1)
  1. ATORVASTATIN (ATORVASTATIN) [Suspect]
     Indication: DYSLIPIDAEMIA
     Dosage: 10 MG DAILY, ORAL
     Route: 048
     Dates: start: 20021001

REACTIONS (3)
  - BLOOD CREATININE DECREASED [None]
  - PNEUMONIA [None]
  - RENAL DISORDER [None]
